FAERS Safety Report 9054604 (Version 7)
Quarter: 2013Q4

REPORT INFORMATION
  Report Type: Spontaneous
  Country: US (occurrence: US)
  Receive Date: 20130208
  Receipt Date: 20131119
  Transmission Date: 20140711
  Serious: No
  Sender: FDA-Public Use
  Company Number: US-PFIZER INC-2013053663

PATIENT
  Age: 80 Year
  Sex: Male
  Weight: 90.7 kg

DRUGS (9)
  1. LIPITOR [Suspect]
     Indication: BLOOD CHOLESTEROL INCREASED
     Dosage: 5 MG, 1X/DAY
     Route: 048
     Dates: start: 1998, end: 20130308
  2. LIPITOR [Suspect]
     Dosage: 5 MG, UNK
  3. LIPITOR [Suspect]
     Dosage: 5 MG (BY CUTTING 10MG TABLET IN TO HALF), 1X/DAY
  4. ADVIL [Concomitant]
     Dosage: UNK, 3 TIMES A DAY
  5. DEXILANT [Concomitant]
     Indication: ABDOMINAL DISCOMFORT
     Dosage: 60 MG, UNK
  6. HYTRIN [Concomitant]
     Indication: PROSTATIC PAIN
     Dosage: 2 MG, 2X/DAY
  7. DIOVANE [Concomitant]
     Dosage: 80 MG, UNK
  8. FISH OIL [Concomitant]
     Dosage: UNK
  9. VITAMIN C [Concomitant]
     Dosage: UNK

REACTIONS (7)
  - Musculoskeletal pain [Not Recovered/Not Resolved]
  - Back pain [Not Recovered/Not Resolved]
  - Arthralgia [Not Recovered/Not Resolved]
  - Myalgia [Not Recovered/Not Resolved]
  - Myalgia [Unknown]
  - Musculoskeletal discomfort [Unknown]
  - Drug ineffective [Unknown]
